FAERS Safety Report 17260824 (Version 2)
Quarter: 2020Q1

REPORT INFORMATION
  Report Type: Spontaneous
  Country: US (occurrence: US)
  Receive Date: 20200113
  Receipt Date: 20200120
  Transmission Date: 20200409
  Serious: Yes (Other)
  Sender: FDA-Public Use
  Company Number: US-ALEMBIC PHARMACUETICALS LIMITED-2019SCAL001025

PATIENT

DRUGS (1)
  1. METOPROLOL TARTRATE. [Suspect]
     Active Substance: METOPROLOL TARTRATE
     Indication: HYPERTENSION
     Dosage: 100 MILLIGRAM, BID

REACTIONS (12)
  - Burning sensation [Recovered/Resolved]
  - Scab [Recovered/Resolved]
  - Skin plaque [Recovered/Resolved]
  - Skin disorder [Recovered/Resolved]
  - Oral mucosal exfoliation [Recovered/Resolved]
  - Gingival erosion [Recovered/Resolved]
  - Erythema [Recovered/Resolved]
  - Skin erosion [Recovered/Resolved]
  - Gingival bleeding [Recovered/Resolved]
  - Pemphigus [Recovered/Resolved]
  - Oral mucosal erythema [Recovered/Resolved]
  - Pain of skin [Recovered/Resolved]
